FAERS Safety Report 5913753-8 (Version None)
Quarter: 2008Q4

REPORT INFORMATION
  Report Type: 
  Country: None (occurrence: None)
  Receive Date: 20081009
  Receipt Date: 20080928
  Transmission Date: 20090506
  Serious: Yes (Death)
  Sender: FDA-Public Use
  Company Number: HU-NOVOPROD-278437

PATIENT
  Age: 34 Year
  Sex: Male
  Weight: 56 kg

DRUGS (21)
  1. NOVOSEVEN [Suspect]
     Indication: RETROPERITONEAL HAEMATOMA
     Dosage: 64.8 MG, UNK
     Route: 042
     Dates: start: 20080701
  2. NOVOSEVEN [Suspect]
     Dosage: 38.4 MG, UNK
     Route: 042
     Dates: start: 20080701
  3. NOVOSEVEN [Suspect]
     Dosage: 57.6 MG, QD
     Route: 042
     Dates: start: 20080730, end: 20080731
  4. NOVOSEVEN [Suspect]
     Dosage: 43.2 MG, QD
     Route: 042
     Dates: start: 20080802, end: 20080802
  5. NOVOSEVEN [Suspect]
     Dosage: 28.8 MG, QD
     Route: 042
     Dates: start: 20080803, end: 20080804
  6. NOVOSEVEN [Suspect]
     Dosage: 7.2 MG, QD
     Route: 042
     Dates: start: 20080805, end: 20080805
  7. EXACYL [Concomitant]
     Dosage: 3 G, QD
     Route: 042
     Dates: start: 20080730, end: 20080805
  8. ZINACEF                            /00454601/ [Concomitant]
     Dosage: 1.5 G, QD
     Route: 042
     Dates: start: 20080730, end: 20080801
  9. KLION                              /00012501/ [Concomitant]
     Dosage: 1.5 G, QD
     Route: 042
     Dates: start: 20080730, end: 20080801
  10. TIENAM [Concomitant]
     Dosage: 2 G, QD
     Route: 042
     Dates: start: 20080730, end: 20080805
  11. CLEXANE [Concomitant]
     Dosage: .4 G, QD
     Route: 042
     Dates: start: 20080730, end: 20080805
  12. TRAMADOL HCL [Concomitant]
     Dosage: 300 MG, QD
     Route: 042
     Dates: start: 20080730, end: 20080801
  13. QUAMATEL [Concomitant]
     Dosage: 40 MG, QD
     Dates: start: 20080730, end: 20080801
  14. CERUCAL [Concomitant]
     Dosage: 10 MG, QD
     Route: 042
     Dates: start: 20080730, end: 20080730
  15. FUROSEMID                          /00032601/ [Concomitant]
     Dosage: 10 MG, QD
     Route: 042
     Dates: start: 20080730, end: 20080730
  16. RED BLOOD CELLS [Concomitant]
     Dosage: 11 U, QD
     Route: 042
     Dates: start: 20080730, end: 20080730
  17. RED BLOOD CELLS [Concomitant]
     Dosage: 3 U, QD
     Route: 042
     Dates: start: 20080803, end: 20080803
  18. FRESH FROZEN PLASMA [Concomitant]
     Dosage: 4 U, QD
     Route: 042
     Dates: start: 20080730, end: 20080730
  19. FRESH FROZEN PLASMA [Concomitant]
     Dosage: 2 U, QD
     Route: 042
     Dates: start: 20080803, end: 20080803
  20. FEIBA [Concomitant]
     Dosage: 59000 U, UNK
     Dates: start: 20080701
  21. FEIBA [Concomitant]
     Dosage: 11000 U, QD
     Dates: start: 20080729, end: 20080729

REACTIONS (1)
  - MULTI-ORGAN FAILURE [None]
